FAERS Safety Report 15168114 (Version 4)
Quarter: 2018Q3

REPORT INFORMATION
  Report Type: Report from Study
  Country: DE (occurrence: DE)
  Receive Date: 20180719
  Receipt Date: 20180824
  Transmission Date: 20181010
  Serious: Yes (Hospitalization)
  Sender: FDA-Public Use
  Company Number: DE-PFIZER INC-2018289005

PATIENT
  Age: 83 Year
  Sex: Male
  Weight: 90 kg

DRUGS (10)
  1. CETUXIMAB. [Suspect]
     Active Substance: CETUXIMAB
     Dosage: 545 MG, UNK
     Route: 042
     Dates: start: 20180801
  2. OXALIPLATIN. [Suspect]
     Active Substance: OXALIPLATIN
     Dosage: 185 MG, UNK
     Route: 042
     Dates: start: 20180807
  3. FLUOROURACIL. [Suspect]
     Active Substance: FLUOROURACIL
     Indication: COLORECTAL CANCER METASTATIC
     Dosage: 5232 MG, UNK
     Route: 042
     Dates: start: 20180604, end: 20180703
  4. LEUCOVORIN. [Suspect]
     Active Substance: LEUCOVORIN
     Indication: COLORECTAL CANCER METASTATIC
     Dosage: 872 MG, UNK
     Route: 042
     Dates: start: 20180604, end: 20180703
  5. LEUCOVORIN. [Suspect]
     Active Substance: LEUCOVORIN
     Dosage: 872 MG, UNK
     Route: 042
     Dates: start: 20180807
  6. AVELUMAB [Suspect]
     Active Substance: AVELUMAB
     Indication: COLORECTAL CANCER METASTATIC
     Dosage: 911 MG, UNK
     Route: 042
     Dates: start: 20180618, end: 20180702
  7. AVELUMAB [Suspect]
     Active Substance: AVELUMAB
     Dosage: 911 MG, UNK
     Route: 042
     Dates: start: 20180807
  8. OXALIPLATIN. [Suspect]
     Active Substance: OXALIPLATIN
     Indication: COLORECTAL CANCER METASTATIC
     Dosage: 185 MG, UNK
     Route: 042
     Dates: start: 20180604, end: 20180703
  9. CETUXIMAB. [Suspect]
     Active Substance: CETUXIMAB
     Indication: COLORECTAL CANCER METASTATIC
     Dosage: 545 MG, UNK
     Route: 042
     Dates: start: 20180604, end: 20180702
  10. FLUOROURACIL. [Suspect]
     Active Substance: FLUOROURACIL
     Dosage: 5232 MG, UNK
     Route: 042
     Dates: start: 20180807

REACTIONS (1)
  - Sepsis [Recovered/Resolved]

NARRATIVE: CASE EVENT DATE: 20180709
